FAERS Safety Report 9203248 (Version 1)
Quarter: 2013Q2

REPORT INFORMATION
  Report Type: Spontaneous
  Country: US (occurrence: US)
  Receive Date: 20130402
  Receipt Date: 20130402
  Transmission Date: 20140414
  Serious: Yes (Other)
  Sender: FDA-Public Use
  Company Number: US-SANOFI-AVENTIS-2013SA032028

PATIENT
  Age: 81 Year
  Sex: Male

DRUGS (2)
  1. LANTUS [Suspect]
     Indication: DIABETES MELLITUS
     Dosage: 50-60 UNITS DAILY
     Route: 058
  2. HUMALOG [Concomitant]

REACTIONS (3)
  - Toe amputation [Recovered/Resolved]
  - Hypoaesthesia [Unknown]
  - Blood glucose decreased [Recovered/Resolved]
